FAERS Safety Report 15913223 (Version 7)
Quarter: 2019Q2

REPORT INFORMATION
  Report Type: Report from Study
  Country: DE (occurrence: DE)
  Receive Date: 20190204
  Receipt Date: 20190402
  Transmission Date: 20190711
  Serious: Yes (Death, Hospitalization)
  Sender: FDA-Public Use
  Company Number: PHHY2019DE020815

PATIENT
  Age: 68 Year
  Sex: Male
  Weight: 70 kg

DRUGS (11)
  1. PAMORELIN [Concomitant]
     Active Substance: TRIPTORELIN PAMOATE
     Indication: PROSTATE CANCER
     Dosage: 11.25 MG, EVERY 3 MONTHS
     Route: 065
     Dates: start: 2015, end: 201803
  2. MOVICOL [Concomitant]
     Active Substance: POLYETHYLENE GLYCOL 3350\POTASSIUM CHLORIDE\SODIUM BICARBONATE\SODIUM CHLORIDE
     Indication: PRODUCT USED FOR UNKNOWN INDICATION
     Dosage: ON DEMAND
     Route: 065
  3. EXJADE [Suspect]
     Active Substance: DEFERASIROX
     Indication: MYELODYSPLASTIC SYNDROME
     Dosage: 360 MG,  (5.2MG/KG BODYWEIGHT/DAY=1 TABLET ? 360MG)
     Route: 065
     Dates: start: 20170227, end: 20170315
  4. METFORMIN [Concomitant]
     Active Substance: METFORMIN HYDROCHLORIDE
     Indication: DIABETES MELLITUS
     Dosage: 1700 MG,  (2X850MG/DAILY)
     Route: 065
  5. ARANESP [Concomitant]
     Active Substance: DARBEPOETIN ALFA
     Indication: MYELODYSPLASTIC SYNDROME
     Dosage: 500 UG, Q4W
     Route: 065
     Dates: start: 20160811, end: 20171127
  6. GRANOCYTE 13 [Concomitant]
     Indication: MYELODYSPLASTIC SYNDROME
     Dosage: 13 MIO IE Q2W
     Route: 065
     Dates: start: 20160811, end: 20170424
  7. ADENURIC [Concomitant]
     Active Substance: FEBUXOSTAT
     Indication: HYPERURICAEMIA
     Dosage: 80 OT, QD
     Route: 065
  8. EXJADE [Suspect]
     Active Substance: DEFERASIROX
     Dosage: 360 MG, (10.4 MG/KG BODYWEIGHT/DAY=2 TABLETS ? 360MG)
     Route: 065
     Dates: start: 20170316, end: 20171219
  9. TAMSULOSIN [Concomitant]
     Active Substance: TAMSULOSIN
     Indication: PRODUCT USED FOR UNKNOWN INDICATION
     Dosage: 0.4 MG, QD (1XDAILY)
     Route: 065
  10. EXJADE [Suspect]
     Active Substance: DEFERASIROX
     Dosage: 360 MG, (15.4 MG/KG BODYWEIGHT/DAY=3 TABLETS ? 360MG)
     Route: 065
     Dates: start: 20171220
  11. FINASTERIDE. [Concomitant]
     Active Substance: FINASTERIDE
     Indication: PRODUCT USED FOR UNKNOWN INDICATION
     Dosage: 5 MG, QD (0-0-1)
     Route: 065

REACTIONS (17)
  - Pneumonia [Fatal]
  - Infection [Unknown]
  - Sepsis [Fatal]
  - Thrombocytopenia [Recovered/Resolved]
  - Pyrexia [Unknown]
  - Cardiac failure [Fatal]
  - Peroneal nerve palsy [Recovered/Resolved]
  - Pneumonia [Recovered/Resolved]
  - Urinary bladder haemorrhage [Recovered/Resolved]
  - Pleural effusion [Recovered/Resolved]
  - Renal failure [Fatal]
  - Influenza [Fatal]
  - Polyneuropathy [Recovered/Resolved]
  - Rectal perforation [Recovered/Resolved]
  - Peritoneal abscess [Recovered/Resolved]
  - Staphylococcal sepsis [Recovered/Resolved]
  - Urinary tract infection [Recovered/Resolved]

NARRATIVE: CASE EVENT DATE: 201811
